FAERS Safety Report 20782681 (Version 12)
Quarter: 2023Q1

REPORT INFORMATION
  Report Type: Spontaneous
  Country: US (occurrence: US)
  Receive Date: 20220504
  Receipt Date: 20230307
  Transmission Date: 20230418
  Serious: Yes (Hospitalization, Other)
  Sender: FDA-Public Use
  Company Number: US-PFIZER INC-202200527673

PATIENT
  Age: 78 Year
  Sex: Female
  Weight: 72.57 kg

DRUGS (10)
  1. IBRANCE [Suspect]
     Active Substance: PALBOCICLIB
     Indication: Breast cancer metastatic
     Dosage: 150 MG
  2. IBRANCE [Suspect]
     Active Substance: PALBOCICLIB
     Dosage: 125 MG
  3. IBRANCE [Suspect]
     Active Substance: PALBOCICLIB
     Dosage: 100 MG, CYCLIC, 1X/DAY, 3 WEEKS ON, THEN ONE WEEK
     Route: 048
  4. IBRANCE [Suspect]
     Active Substance: PALBOCICLIB
     Dosage: 75 MG, CYCLIC (TAKE ONE TAB BY MOUTH DAILY 2 WEEKS ON, ONE WEEK OFF)
     Route: 048
  5. IBRANCE [Suspect]
     Active Substance: PALBOCICLIB
     Dosage: 75 MG, CYCLIC (TAKE 1 TABLET BY MOUTH EVERY DAY FOR 21 DAYS ON THEN 7 DAYS OFF)
     Route: 048
     Dates: start: 202109
  6. IBRANCE [Suspect]
     Active Substance: PALBOCICLIB
     Dosage: 75 MG
  7. IBRANCE [Suspect]
     Active Substance: PALBOCICLIB
     Dosage: 75 MG, CYCLIC (ON 2 WEEKS AND OFF 1 WEEK)
     Dates: start: 202209
  8. ARIMIDEX [Suspect]
     Active Substance: ANASTROZOLE
     Dosage: UNK, 1X/DAY
  9. ARIMIDEX [Suspect]
     Active Substance: ANASTROZOLE
     Dosage: UNK
     Dates: start: 202109
  10. SYNTHROID [Concomitant]
     Active Substance: LEVOTHYROXINE SODIUM
     Indication: Autoimmune thyroiditis
     Dosage: UNK
     Dates: start: 1998

REACTIONS (20)
  - White blood cell count decreased [Not Recovered/Not Resolved]
  - Red blood cell count decreased [Not Recovered/Not Resolved]
  - Immune system disorder [Not Recovered/Not Resolved]
  - Hypersomnia [Not Recovered/Not Resolved]
  - Hot flush [Not Recovered/Not Resolved]
  - Drug dependence [Unknown]
  - Blood oestrogen decreased [Unknown]
  - Bone loss [Recovered/Resolved]
  - Back pain [Recovered/Resolved]
  - Dyspnoea exertional [Unknown]
  - Asthenia [Unknown]
  - Poor quality sleep [Unknown]
  - Fatigue [Unknown]
  - Malaise [Recovering/Resolving]
  - Sleep disorder [Recovering/Resolving]
  - Mean cell volume increased [Unknown]
  - Mean cell haemoglobin increased [Unknown]
  - Neutrophil count decreased [Unknown]
  - Lymphocyte count decreased [Unknown]
  - Nervousness [Unknown]

NARRATIVE: CASE EVENT DATE: 20210901
